FAERS Safety Report 23355080 (Version 2)
Quarter: 2024Q1

REPORT INFORMATION
  Report Type: Report from Study
  Country: CO (occurrence: CO)
  Receive Date: 20240102
  Receipt Date: 20240118
  Transmission Date: 20240410
  Serious: Yes (Hospitalization)
  Sender: FDA-Public Use
  Company Number: CO-ABBVIE-5566608

PATIENT
  Age: 75 Year
  Sex: Female

DRUGS (1)
  1. VENCLEXTA [Suspect]
     Active Substance: VENETOCLAX
     Indication: Acute myeloid leukaemia
     Dosage: 400 MILLIGRAM?FORM STRENGTH: 100 MG
     Route: 048
     Dates: start: 20230626, end: 20231014

REACTIONS (7)
  - Antibody test abnormal [Recovering/Resolving]
  - Bacterial infection [Recovering/Resolving]
  - Infection [Recovering/Resolving]
  - Febrile neutropenia [Recovering/Resolving]
  - Haemoglobin abnormal [Unknown]
  - Immunodeficiency [Recovering/Resolving]
  - Platelet count abnormal [Unknown]

NARRATIVE: CASE EVENT DATE: 20231101
